FAERS Safety Report 7764586-1 (Version None)
Quarter: 2011Q3

REPORT INFORMATION
  Report Type: 
  Country: None (occurrence: None)
  Receive Date: 20110921
  Receipt Date: 20110913
  Transmission Date: 20111222
  Serious: Yes (Other)
  Sender: FDA-Public Use
  Company Number: US-AMGEN-USASP2011046863

PATIENT
  Age: 62 Year
  Sex: Female

DRUGS (1)
  1. ENBREL [Suspect]
     Indication: RHEUMATOID ARTHRITIS
     Dosage: 50 MG, QWK
     Dates: start: 20050803

REACTIONS (5)
  - HYPERSENSITIVITY [None]
  - PLEURAL EFFUSION [None]
  - PNEUMONIA [None]
  - MICTURITION URGENCY [None]
  - POLLAKIURIA [None]
